FAERS Safety Report 4392283-1 (Version None)
Quarter: 2004Q3

REPORT INFORMATION
  Report Type: 
  Country: None (occurrence: None)
  Receive Date: 20040708
  Receipt Date: 20040630
  Transmission Date: 20050211
  Serious: Yes (Hospitalization)
  Sender: FDA-Public Use
  Company Number: DE-BRISTOL-MYERS SQUIBB COMPANY-12629358

PATIENT
  Age: 43 Year
  Sex: Female
  Weight: 59 kg

DRUGS (1)
  1. CISPLATIN [Suspect]
     Indication: CERVIX CARCINOMA
     Route: 042
     Dates: start: 20040518, end: 20040518

REACTIONS (5)
  - ANAEMIA [None]
  - BRONCHITIS [None]
  - FEBRILE NEUTROPENIA [None]
  - HERPES ZOSTER [None]
  - THROMBOCYTOPENIA [None]
